FAERS Safety Report 10696154 (Version 4)
Quarter: 2016Q2

REPORT INFORMATION
  Report Type: Spontaneous
  Country: US (occurrence: US)
  Receive Date: 20150107
  Receipt Date: 20160413
  Transmission Date: 20160815
  Serious: Yes (Hospitalization, Other)
  Sender: FDA-Public Use
  Company Number: US-BAYER-2015-001658

PATIENT
  Age: 42 Year
  Sex: Female
  Weight: 56.69 kg

DRUGS (11)
  1. PAXIL [Concomitant]
     Active Substance: PAROXETINE HYDROCHLORIDE
  2. ATIVAN [Concomitant]
     Active Substance: LORAZEPAM
  3. VAGISIL ANTI ITCH ORIGINAL STRENGTH [Concomitant]
     Active Substance: BENZOCAINE\RESORCINOL
  4. FLAGYL [Concomitant]
     Active Substance: METRONIDAZOLE\METRONIDAZOLE HYDROCHLORIDE
  5. TRAMADOL. [Concomitant]
     Active Substance: TRAMADOL
  6. MIRENA [Suspect]
     Active Substance: LEVONORGESTREL
     Indication: CONTRACEPTION
     Dosage: 20 MCG/24HR, CONT
     Route: 015
     Dates: start: 20050502, end: 20100517
  7. MIRENA [Suspect]
     Active Substance: LEVONORGESTREL
     Indication: MENORRHAGIA
     Dosage: 20 MCG/24HR, CONT
     Route: 015
     Dates: start: 20100517, end: 201208
  8. BENTYL [Concomitant]
     Active Substance: DICYCLOMINE HYDROCHLORIDE
  9. HYDROCORTISONE. [Concomitant]
     Active Substance: HYDROCORTISONE
  10. CALCIUM [Concomitant]
     Active Substance: CALCIUM
  11. LIDOCAINE. [Concomitant]
     Active Substance: LIDOCAINE

REACTIONS (13)
  - Device dislocation [None]
  - Uterine leiomyoma [None]
  - Medical device discomfort [None]
  - Ischaemic stroke [None]
  - Genital haemorrhage [None]
  - Injury [None]
  - Emotional distress [None]
  - Stress [None]
  - Abdominal pain [None]
  - Anxiety [None]
  - Off label use [None]
  - Depression [None]
  - Embedded device [None]

NARRATIVE: CASE EVENT DATE: 2008
